FAERS Safety Report 21643192 (Version 2)
Quarter: 2022Q4

REPORT INFORMATION
  Report Type: Spontaneous
  Country: RU (occurrence: RU)
  Receive Date: 20221125
  Receipt Date: 20221130
  Transmission Date: 20230112
  Serious: Yes (Other)
  Sender: FDA-Public Use
  Company Number: RU-BoehringerIngelheim-2022-BI-204633

PATIENT
  Age: 61 Year
  Sex: Male
  Weight: 68 kg

DRUGS (2)
  1. JARDIANCE [Suspect]
     Active Substance: EMPAGLIFLOZIN
     Indication: Cardiac failure chronic
     Route: 048
     Dates: start: 20220715
  2. ROSUVASTATIN [Concomitant]
     Active Substance: ROSUVASTATIN
     Indication: Hypercholesterolaemia

REACTIONS (1)
  - Hyperglycaemia [Recovered/Resolved with Sequelae]

NARRATIVE: CASE EVENT DATE: 20220805
